FAERS Safety Report 9075543 (Version 1)
Quarter: 2013Q1

REPORT INFORMATION
  Report Type: Report from Study
  Country: US (occurrence: TH)
  Receive Date: 20130131
  Receipt Date: 20130131
  Transmission Date: 20140127
  Serious: Yes (Other)
  Sender: FDA-Public Use
  Company Number: US-ABBOTT-12P-155-0953458-00

PATIENT
  Age: 44 Year
  Sex: Female

DRUGS (6)
  1. KALETRA SOFT GELATIN CAPSULES [Suspect]
     Indication: ANTIVIRAL TREATMENT
     Dosage: NOT TAKEN AT CONCEPTION
     Route: 048
     Dates: start: 20120314
  2. NORVIR SOFT GELATIN CAPSULES [Suspect]
     Indication: ANTIVIRAL TREATMENT
     Dosage: 150 MG DAILY; TAKEN AT CONCEPTION
     Route: 048
     Dates: start: 20101103, end: 20120312
  3. REYATAZ [Suspect]
     Indication: ANTIVIRAL TREATMENT
     Dosage: 300 MG DAILY; TAKEN AT CONCEPTION
     Route: 048
     Dates: start: 20101103, end: 20120312
  4. EPIVIR [Suspect]
     Indication: ANTIVIRAL TREATMENT
     Dosage: NOT TAKEN AT CONCEPTION
     Route: 048
     Dates: start: 20120314
  5. VIREAD [Suspect]
     Indication: ANTIVIRAL TREATMENT
     Dosage: NOT TAKEN AT CONCEPTION
     Route: 048
     Dates: start: 20120314
  6. TRUVADA [Suspect]
     Indication: ANTIVIRAL TREATMENT
     Dosage: 1 TABS/CAPS DAILY; TAKEN AT CONCEPTION
     Route: 048
     Dates: start: 20101103, end: 20120312

REACTIONS (1)
  - Abortion spontaneous [Unknown]
